FAERS Safety Report 5411858-1 (Version None)
Quarter: 2007Q3

REPORT INFORMATION
  Report Type: 
  Country: None (occurrence: None)
  Receive Date: 20070813
  Receipt Date: 20070808
  Transmission Date: 20080115
  Serious: Yes (Death)
  Sender: FDA-Public Use
  Company Number: NZ-ELI_LILLY_AND_COMPANY-NZ200608006728

PATIENT
  Age: 58 Year
  Sex: Female

DRUGS (2)
  1. ZYPREXA [Suspect]
     Indication: DEPRESSION
  2. NORTRIPTYLINE HCL [Concomitant]
     Dosage: 150 MG, UNK

REACTIONS (2)
  - OEDEMA PERIPHERAL [None]
  - PULMONARY EMBOLISM [None]
